FAERS Safety Report 9307421 (Version 1)
Quarter: 2013Q2

REPORT INFORMATION
  Report Type: Spontaneous
  Country: US (occurrence: US)
  Receive Date: 20130524
  Receipt Date: 20130524
  Transmission Date: 20140414
  Serious: No
  Sender: FDA-Public Use
  Company Number: US-009507513-1305USA013374

PATIENT
  Age: 25 Year
  Sex: Male

DRUGS (5)
  1. SAPHRIS [Suspect]
     Indication: BIPOLAR I DISORDER
     Dosage: 5 MG, BID
     Route: 060
     Dates: start: 20130327, end: 20130401
  2. RISPERDAL [Concomitant]
  3. EFFEXOR [Concomitant]
  4. KLONOPIN [Concomitant]
  5. CLONIDINE [Concomitant]

REACTIONS (1)
  - Drug hypersensitivity [Recovered/Resolved]
